FAERS Safety Report 4593341-9 (Version None)
Quarter: 2005Q1

REPORT INFORMATION
  Report Type: 
  Country: None (occurrence: None)
  Receive Date: 20050224
  Receipt Date: 20040503
  Transmission Date: 20050727
  Serious: Yes (Disabling)
  Sender: FDA-Public Use
  Company Number: US-BRISTOL-MYERS SQUIBB COMPANY-12578282

PATIENT
  Sex: Female

DRUGS (1)
  1. EXCEDRIN (MIGRAINE) [Suspect]
     Dosage: 2 TO 4 TABLETS DAILY
     Route: 048

REACTIONS (3)
  - DEAFNESS [None]
  - DRUG ABUSER [None]
  - HEADACHE [None]
